FAERS Safety Report 20969954 (Version 1)
Quarter: 2022Q2

REPORT INFORMATION
  Report Type: Spontaneous
  Country: US (occurrence: US)
  Receive Date: 20220616
  Receipt Date: 20220616
  Transmission Date: 20220721
  Serious: Yes (Other)
  Sender: FDA-Public Use
  Company Number: US-SANOFI-01126237

PATIENT
  Age: 69 Year
  Sex: Male

DRUGS (1)
  1. APIDRA [Suspect]
     Active Substance: INSULIN GLULISINE
     Indication: Type 2 diabetes mellitus
     Dosage: 6 IU, TID

REACTIONS (4)
  - Diabetes mellitus inadequate control [Unknown]
  - Blood glucose decreased [Unknown]
  - Therapeutic response decreased [Unknown]
  - Intentional product use issue [Unknown]
